FAERS Safety Report 6081161-8 (Version None)
Quarter: 2009Q1

REPORT INFORMATION
  Report Type: 
  Country: None (occurrence: None)
  Receive Date: 20090213
  Receipt Date: 20090128
  Transmission Date: 20090719
  Serious: Yes (Life-Threatening, Hospitalization)
  Sender: FDA-Public Use
  Company Number: JPI-P-005958

PATIENT
  Age: 46 Year
  Sex: Female

DRUGS (6)
  1. LUVOX [Suspect]
     Indication: DRUG USE FOR UNKNOWN INDICATION
     Dosage: ORAL
     Route: 048
  2. METHADONE HCL [Suspect]
     Indication: SUBSTANCE ABUSE
     Dosage: 157.5 MG, 1 IN 1 D, ORAL
     Route: 048
     Dates: end: 20081231
  3. ATAZANAVIR SULFATE [Suspect]
     Indication: HIV INFECTION
     Dosage: 300 MG, 1 D, ORAL
     Route: 048
     Dates: start: 20080801
  4. RITONAVIR [Suspect]
     Indication: HIV INFECTION
     Dosage: 100 MG, 1 D, ORAL
     Route: 048
     Dates: start: 20080801
  5. NALOXONE [Suspect]
     Indication: DRUG DEPENDENCE
     Dates: start: 20081227
  6. EMTRICITABINE/TENOFOVIR DISOPROXIL FUMARATE [Concomitant]

REACTIONS (22)
  - ACUTE PULMONARY OEDEMA [None]
  - AGITATION [None]
  - CHRONIC HEPATITIS [None]
  - COMA [None]
  - COMMUNICATION DISORDER [None]
  - CORONARY ARTERY STENOSIS [None]
  - EJECTION FRACTION DECREASED [None]
  - ELECTROCARDIOGRAM QT PROLONGED [None]
  - HEPATIC FUNCTION ABNORMAL [None]
  - HEPATIC LESION [None]
  - HEPATIC NEOPLASM MALIGNANT [None]
  - HEPATOMEGALY [None]
  - HYPERVENTILATION [None]
  - HYPOTENSION [None]
  - MOANING [None]
  - MUSCLE SPASTICITY [None]
  - REFUSAL OF TREATMENT BY PATIENT [None]
  - SPLENOMEGALY [None]
  - STRESS CARDIOMYOPATHY [None]
  - THERAPEUTIC AGENT TOXICITY [None]
  - TORSADE DE POINTES [None]
  - TROPONIN INCREASED [None]
